FAERS Safety Report 9548970 (Version 1)
Quarter: 2013Q3

REPORT INFORMATION
  Report Type: Spontaneous
  Country: US (occurrence: US)
  Receive Date: 20130924
  Receipt Date: 20130924
  Transmission Date: 20140515
  Serious: No
  Sender: FDA-Public Use
  Company Number: US-BAYER-2013-115149

PATIENT
  Age: 66 Year
  Sex: Female
  Weight: 56.69 kg

DRUGS (1)
  1. ALEVE TABLET [Suspect]
     Indication: HEADACHE
     Dosage: 1 DF, PRN
     Route: 048
     Dates: start: 2010

REACTIONS (1)
  - Hypergeusia [Recovered/Resolved]
